FAERS Safety Report 6144386-9 (Version None)
Quarter: 2009Q2

REPORT INFORMATION
  Report Type: 
  Country: None (occurrence: None)
  Receive Date: 20090401
  Receipt Date: 20090115
  Transmission Date: 20091009
  Serious: Yes (Other)
  Sender: FDA-Public Use
  Company Number: 039729

PATIENT
  Age: 5 Year
  Sex: Female

DRUGS (1)
  1. ADDERALL 15 [Suspect]
     Indication: ATTENTION DEFICIT/HYPERACTIVITY DISORDER
     Dosage: ORAL
     Route: 048
     Dates: start: 20090113, end: 20090113

REACTIONS (3)
  - CHEST PAIN [None]
  - HEART RATE INCREASED [None]
  - MYOCARDIAL INFARCTION [None]
